FAERS Safety Report 8197737-8 (Version None)
Quarter: 2012Q1

REPORT INFORMATION
  Report Type: 
  Country: None (occurrence: None)
  Receive Date: 20120307
  Receipt Date: 20120222
  Transmission Date: 20120608
  Serious: Yes (Hospitalization)
  Sender: FDA-Public Use
  Company Number: UTC-015915

PATIENT
  Age: 68 Year
  Sex: Male

DRUGS (1)
  1. TYVASO [Suspect]
     Indication: PULMONARY ARTERIAL HYPERTENSION
     Dosage: INHALATION
     Route: 055
     Dates: start: 20111201

REACTIONS (6)
  - MENTAL STATUS CHANGES [None]
  - INTERSTITIAL LUNG DISEASE [None]
  - PRODUCTIVE COUGH [None]
  - CEREBROVASCULAR ACCIDENT [None]
  - PULMONARY FUNCTION TEST [None]
  - SOMNOLENCE [None]
